FAERS Safety Report 8306385-8 (Version None)
Quarter: 2012Q2

REPORT INFORMATION
  Report Type: 
  Country: None (occurrence: None)
  Receive Date: 20120423
  Receipt Date: 20120418
  Transmission Date: 20120825
  Serious: Yes (Hospitalization)
  Sender: FDA-Public Use
  Company Number: GB-ELI_LILLY_AND_COMPANY-GB201204005993

PATIENT
  Age: 70 Year
  Sex: Male
  Weight: 117.7 kg

DRUGS (12)
  1. SILDENAFIL [Concomitant]
     Dosage: UNK
     Dates: start: 20120410
  2. SILDENAFIL [Concomitant]
     Dosage: UNK
     Dates: start: 20120308, end: 20120405
  3. GLICLAZIDE [Concomitant]
     Dosage: UNK
     Dates: start: 20120410
  4. METFORMIN HCL [Concomitant]
     Dosage: UNK
     Dates: start: 20120213, end: 20120409
  5. ATENOLOL [Concomitant]
     Dosage: UNK
     Dates: start: 20120308
  6. GLICLAZIDE [Concomitant]
     Dosage: UNK
     Dates: start: 20120213, end: 20120409
  7. SIMVASTATIN [Concomitant]
     Dosage: UNK
     Dates: start: 20120410
  8. EXENATIDE [Suspect]
     Dosage: UNK, UNKNOWN
     Dates: start: 20120410
  9. AMLODIPINE [Concomitant]
     Dosage: UNK
     Dates: start: 20120308
  10. SIMVASTATIN [Concomitant]
     Dosage: UNK
     Dates: start: 20120213, end: 20120409
  11. METFORMIN HCL [Concomitant]
     Dosage: UNK
     Dates: start: 20120410
  12. DULOXETINE HYDROCHLORIDE [Concomitant]
     Dosage: UNK
     Dates: start: 20120308, end: 20120405

REACTIONS (2)
  - CONDITION AGGRAVATED [None]
  - SKIN ULCER [None]
